FAERS Safety Report 12804922 (Version 2)
Quarter: 2019Q4

REPORT INFORMATION
  Report Type: Spontaneous
  Country: US (occurrence: US)
  Receive Date: 20161004
  Receipt Date: 20191210
  Transmission Date: 20200122
  Serious: Yes (Other)
  Sender: FDA-Public Use
  Company Number: US-UCBSA-2016037610

PATIENT
  Sex: Male

DRUGS (1)
  1. CIMZIA [Suspect]
     Active Substance: CERTOLIZUMAB PEGOL
     Indication: RHEUMATOID ARTHRITIS
     Dosage: 400 MG, EV 4 WEEKS (NDC# 5047401079)
     Route: 058
     Dates: start: 20150910, end: 201609

REACTIONS (1)
  - Lymphoma [Unknown]

NARRATIVE: CASE EVENT DATE: 2016
